FAERS Safety Report 13986046 (Version 1)
Quarter: 2017Q3

REPORT INFORMATION
  Report Type: Spontaneous
  Country: US (occurrence: US)
  Receive Date: 20170919
  Receipt Date: 20170919
  Transmission Date: 20171128
  Serious: No
  Sender: FDA-Public Use
  Company Number: None

PATIENT
  Age: 67 Year
  Sex: Male

DRUGS (1)
  1. TESTOSTERONE GEL [Suspect]
     Active Substance: TESTOSTERONE
     Indication: ANDROGEN DEFICIENCY
     Route: 062
     Dates: start: 20170810, end: 20170910

REACTIONS (3)
  - Drug effect decreased [None]
  - Laboratory test abnormal [None]
  - Product physical issue [None]

NARRATIVE: CASE EVENT DATE: 20170919
